FAERS Safety Report 24252585 (Version 1)
Quarter: 2024Q3

REPORT INFORMATION
  Report Type: Spontaneous
  Country: US (occurrence: US)
  Receive Date: 20240827
  Receipt Date: 20240827
  Transmission Date: 20241016
  Serious: No
  Sender: AUROBINDO
  Company Number: US-AUROBINDO-AUR-APL-2024-036404

PATIENT
  Age: 59 Year
  Sex: Female

DRUGS (1)
  1. DICLOFENAC SODIUM [Suspect]
     Active Substance: DICLOFENAC\DICLOFENAC SODIUM
     Indication: Product used for unknown indication
     Dosage: UNK, TWO TIMES A DAY (1-2 PUMPS TWICE A DAY)
     Route: 061
     Dates: start: 20240701

REACTIONS (2)
  - Product dose omission issue [Unknown]
  - Device malfunction [Unknown]
